FAERS Safety Report 4488087-1 (Version None)
Quarter: 2004Q4

REPORT INFORMATION
  Report Type: 
  Country: None (occurrence: None)
  Receive Date: 20041028
  Receipt Date: 20041018
  Transmission Date: 20050328
  Serious: Yes (Hospitalization)
  Sender: FDA-Public Use
  Company Number: JP-GLAXOSMITHKLINE-B0349017A

PATIENT
  Age: 66 Year
  Sex: Male
  Weight: 58 kg

DRUGS (9)
  1. VALTREX [Suspect]
     Indication: HERPES ZOSTER
     Dosage: 1000MG PER DAY
     Route: 048
     Dates: start: 20041012, end: 20041015
  2. SIGMART [Concomitant]
     Dosage: 1TAB THREE TIMES PER DAY
     Route: 048
  3. ALOSENN [Concomitant]
     Dosage: .5G THREE TIMES PER DAY
     Route: 048
  4. NITOROL R [Concomitant]
     Dosage: 1CAP TWICE PER DAY
     Route: 048
  5. ALFAROL [Concomitant]
     Route: 048
  6. VASOLAN [Concomitant]
     Dosage: 1TAB TWICE PER DAY
     Route: 048
  7. APONOL [Concomitant]
     Dosage: 1TAB THREE TIMES PER DAY
     Route: 048
  8. ZESTROMIN [Concomitant]
     Dosage: 1TAB PER DAY
     Route: 048
  9. ALPRAZOLAM [Concomitant]
     Dosage: 1TAB PER DAY
     Route: 048

REACTIONS (1)
  - PSYCHIATRIC SYMPTOM [None]
